FAERS Safety Report 9628573 (Version 1)
Quarter: 2013Q4

REPORT INFORMATION
  Report Type: Spontaneous
  Country: TW (occurrence: TW)
  Receive Date: 20131017
  Receipt Date: 20131017
  Transmission Date: 20140711
  Serious: Yes (Other)
  Sender: FDA-Public Use
  Company Number: TW-BAYER-2013-120727

PATIENT
  Age: 46 Year
  Sex: Female

DRUGS (1)
  1. CIPROXIN [Suspect]
     Dosage: 400 MG Q12H

REACTIONS (5)
  - Herpes zoster [None]
  - Immunodeficiency [None]
  - Vitiligo [None]
  - Alopecia [None]
  - Skin disorder [None]
